FAERS Safety Report 25428212 (Version 1)
Quarter: 2025Q2

REPORT INFORMATION
  Report Type: Spontaneous
  Country: US (occurrence: US)
  Receive Date: 20250612
  Receipt Date: 20250612
  Transmission Date: 20250717
  Serious: No
  Sender: SANOFI AVENTIS
  Company Number: US-SA-2025SA166432

PATIENT
  Sex: Male
  Weight: 95.45 kg

DRUGS (12)
  1. DUPIXENT [Suspect]
     Active Substance: DUPILUMAB
     Indication: Illness
     Dosage: 300 MG, QOW
     Route: 058
  2. TRESIBA [Concomitant]
     Active Substance: INSULIN DEGLUDEC
  3. INSULIN LISPRO [Concomitant]
     Active Substance: INSULIN LISPRO
  4. IBSRELA [Concomitant]
     Active Substance: TENAPANOR HYDROCHLORIDE
  5. GABAPENTIN [Concomitant]
     Active Substance: GABAPENTIN
  6. OZEMPIC [Concomitant]
     Active Substance: SEMAGLUTIDE
  7. QBREXZA [Concomitant]
     Active Substance: GLYCOPYRRONIUM TOSYLATE
  8. MELOXICAM [Concomitant]
     Active Substance: MELOXICAM
  9. VALACYCLOVIR [Concomitant]
     Active Substance: VALACYCLOVIR HYDROCHLORIDE
  10. FLONASE ALLERGY RELIEF [Concomitant]
     Active Substance: FLUTICASONE PROPIONATE
  11. EPIPEN [Concomitant]
     Active Substance: EPINEPHRINE
  12. VITAMINS [Concomitant]
     Active Substance: VITAMINS

REACTIONS (3)
  - Dry skin [Unknown]
  - Skin fissures [Unknown]
  - Pruritus [Unknown]

NARRATIVE: CASE EVENT DATE: 20250501
